FAERS Safety Report 8827517 (Version 3)
Quarter: 2012Q4

REPORT INFORMATION
  Report Type: 
  Country: JP (occurrence: JP)
  Receive Date: 20121005
  Receipt Date: 20121121
  Transmission Date: 20130627
  Serious: Yes (Disabling, Other)
  Sender: FDA-Public Use
  Company Number: JP-BRISTOL-MYERS SQUIBB COMPANY-17013079

PATIENT
  Age: 75 Year
  Sex: Female
  Weight: 53 kg

DRUGS (10)
  1. TAXOL INJ [Suspect]
     Indication: BREAST CANCER
     Dosage: 260 mg(IV) once in 3 weeks
     Route: 041
     Dates: start: 20120625, end: 20120813
  2. TAXOL INJ [Suspect]
     Indication: METASTASES TO LIVER
     Dosage: 260 mg(IV) once in 3 weeks
     Route: 041
     Dates: start: 20120625, end: 20120813
  3. GEMZAR [Suspect]
     Indication: BREAST CANCER
     Dosage: 2 week on and 1 week off
     Route: 041
     Dates: start: 20120625, end: 20120813
  4. GEMZAR [Suspect]
     Indication: METASTASES TO LIVER
     Dosage: 2 week on and 1 week off
     Route: 041
     Dates: start: 20120625, end: 20120813
  5. HERCEPTIN [Suspect]
     Indication: BREAST CANCER
     Route: 041
     Dates: start: 20090114
  6. HERCEPTIN [Suspect]
     Indication: METASTASES TO LIVER
     Route: 041
     Dates: start: 20090114
  7. DECADRON [Concomitant]
  8. ZANTAC [Concomitant]
  9. RESTAMIN [Concomitant]
  10. NAVELBINE [Concomitant]
     Indication: RECURRENT CANCER
     Route: 042
     Dates: start: 20090114, end: 20120611

REACTIONS (2)
  - Corneal erosion [Recovering/Resolving]
  - Visual impairment [Recovered/Resolved]
